FAERS Safety Report 9501500 (Version 1)
Quarter: 2013Q3

REPORT INFORMATION
  Report Type: Spontaneous
  Country: JP (occurrence: JP)
  Receive Date: 20130905
  Receipt Date: 20130905
  Transmission Date: 20140515
  Serious: Yes (Death, Hospitalization)
  Sender: FDA-Public Use
  Company Number: JP-TEVA-429247ISR

PATIENT
  Age: 95 Year
  Sex: Male

DRUGS (10)
  1. PREDNISOLONE [Suspect]
     Indication: PNEUMONIA CHLAMYDIAL
     Dosage: 40 MILLIGRAM DAILY;
     Route: 065
  2. PREDNISOLONE [Suspect]
     Indication: PNEUMONIA CHLAMYDIAL
     Dosage: 60 MILLIGRAM DAILY;
     Route: 065
  3. PREDNISOLONE [Suspect]
     Indication: PNEUMONIA CHLAMYDIAL
  4. METHYLPREDNISOLONE [Suspect]
     Indication: PNEUMONIA CHLAMYDIAL
     Dosage: 500 MILLIGRAM DAILY;
     Route: 065
  5. METHYLPREDNISOLONE [Suspect]
     Indication: PNEUMONIA CHLAMYDIAL
     Dosage: 1000 MILLIGRAM DAILY;
     Route: 065
  6. METHYLPREDNISOLONE [Suspect]
     Indication: PNEUMONIA CHLAMYDIAL
     Dosage: 1000 MG/DAY
     Route: 065
  7. CEFTRIAXONE [Concomitant]
     Indication: PNEUMONIA CHLAMYDIAL
     Dosage: 1 GRAM DAILY;
     Route: 065
  8. COTRIMOXAZOLE [Concomitant]
     Indication: ANTIFUNGAL PROPHYLAXIS
     Dosage: 160 MG/DAY TRIMETHOPRIM
     Route: 065
  9. MEROPENEM [Concomitant]
     Indication: PNEUMONIA CHLAMYDIAL
     Dosage: 2 G/DAY
     Route: 065
  10. AZITHROMYCIN [Concomitant]
     Indication: PNEUMONIA CHLAMYDIAL
     Dosage: 500 MG/DAY
     Route: 065

REACTIONS (5)
  - Bronchopulmonary aspergillosis [Fatal]
  - Pneumocystis jirovecii pneumonia [Fatal]
  - Multi-organ failure [Fatal]
  - Hypocomplementaemia [Unknown]
  - Hypoalbuminaemia [Unknown]
